FAERS Safety Report 8151799 (Version 2)
Quarter: 2012Q4

REPORT INFORMATION
  Report Type: 
  Country: US (occurrence: US)
  Receive Date: 20110922
  Receipt Date: 20121205
  Transmission Date: 20130627
  Serious: No
  Sender: FDA-Public Use
  Company Number: US-ASTRAZENECA-2010SE51232

PATIENT
  Age: 43 Year
  Sex: Male
  Weight: 120.2 kg

DRUGS (7)
  1. SEROQUEL [Suspect]
     Indication: ANGER
     Route: 048
     Dates: start: 201009
  2. CELEXA [Concomitant]
     Indication: ANGER
     Dates: start: 201010
  3. FISH OIL [Concomitant]
  4. BABY ASPIRIN [Concomitant]
  5. IBUPROPHEN [Concomitant]
  6. FIBER [Concomitant]
  7. CENTRUM SILVER [Concomitant]

REACTIONS (7)
  - Anger [Not Recovered/Not Resolved]
  - Fall [Unknown]
  - Contusion [Unknown]
  - Eye contusion [Unknown]
  - Face injury [Unknown]
  - Mental impairment [Unknown]
  - Drug dose omission [Unknown]
